FAERS Safety Report 20147230 (Version 2)
Quarter: 2021Q4

REPORT INFORMATION
  Report Type: Spontaneous
  Country: US (occurrence: US)
  Receive Date: 20211203
  Receipt Date: 20211225
  Transmission Date: 20220304
  Serious: No
  Sender: FDA-Public Use
  Company Number: US-SA-SAC20211127000773

PATIENT
  Age: 42 Year
  Sex: Female

DRUGS (14)
  1. DUPIXENT [Suspect]
     Active Substance: DUPILUMAB
     Indication: Asthma
     Dosage: 600 MG, 1X
     Route: 030
     Dates: start: 20211109, end: 20211109
  2. SODIUM CHLORIDE [Concomitant]
     Active Substance: SODIUM CHLORIDE
  3. MONTELUKAST SODIUM [Concomitant]
     Active Substance: MONTELUKAST SODIUM
  4. VITAMIN D3 [Concomitant]
     Active Substance: CHOLECALCIFEROL
  5. BENADRYL ALLERGY [Concomitant]
     Active Substance: DIPHENHYDRAMINE HYDROCHLORIDE
     Dosage: 25MG
  6. SIMVASTATIN [Concomitant]
     Active Substance: SIMVASTATIN
  7. SPIRIVA RESPIMAT [Concomitant]
     Active Substance: TIOTROPIUM BROMIDE
  8. DULERA [Concomitant]
     Active Substance: FORMOTEROL FUMARATE DIHYDRATE\MOMETASONE FUROATE
     Dosage: 100-5 MCG HFA AER AD
  9. ZYRTEC [Concomitant]
     Active Substance: CETIRIZINE HYDROCHLORIDE
     Dosage: 10MG
  10. SINGULAIR [Concomitant]
     Active Substance: MONTELUKAST SODIUM
  11. PREDNISONE [Concomitant]
     Active Substance: PREDNISONE
  12. GABAPENTIN [Concomitant]
     Active Substance: GABAPENTIN
  13. VITAMINS NOS [Concomitant]
     Active Substance: VITAMINS
  14. AMINO ACIDS/MULTIVITAMINS [Concomitant]

REACTIONS (7)
  - Injection site mass [Unknown]
  - Injection site bruising [Unknown]
  - Arthralgia [Recovered/Resolved]
  - Eosinophil count increased [Unknown]
  - Hypersensitivity [Unknown]
  - Product use issue [Unknown]
  - Incorrect route of product administration [Unknown]

NARRATIVE: CASE EVENT DATE: 20211101
